FAERS Safety Report 6090779-8 (Version None)
Quarter: 2009Q1

REPORT INFORMATION
  Report Type: 
  Country: None (occurrence: None)
  Receive Date: 20090224
  Receipt Date: 20090204
  Transmission Date: 20090719
  Serious: No
  Sender: FDA-Public Use
  Company Number: US-ABBOTT-09P-163-0501984-00

PATIENT
  Sex: Female

DRUGS (15)
  1. SIMCOR [Suspect]
     Indication: BLOOD CHOLESTEROL INCREASED
     Dosage: 500MG/20MG
     Dates: start: 20090101
  2. ASPIRIN [Concomitant]
     Indication: DRUG USE FOR UNKNOWN INDICATION
  3. ASPIRIN [Concomitant]
     Dosage: BEFORE SIMCOR, MD INCREASED DOSE
  4. CIPRO [Concomitant]
     Indication: BLOOD URINE PRESENT
  5. MILK OF MAGNESIUM [Concomitant]
     Indication: DRUG USE FOR UNKNOWN INDICATION
  6. TYLENOL (CAPLET) [Concomitant]
     Indication: DRUG USE FOR UNKNOWN INDICATION
  7. PAXIL [Concomitant]
     Indication: DRUG USE FOR UNKNOWN INDICATION
  8. LISINOPRIL AND HYDROCHLOROTHIAZIDE [Concomitant]
     Indication: DRUG USE FOR UNKNOWN INDICATION
     Dosage: 20MG/12.5MG
  9. VALTREX [Concomitant]
     Indication: DRUG USE FOR UNKNOWN INDICATION
  10. CYCLOBENZAPRINE [Concomitant]
     Indication: DRUG USE FOR UNKNOWN INDICATION
  11. ASCORBIC ACID [Concomitant]
     Indication: DRUG USE FOR UNKNOWN INDICATION
  12. ONE A DAY WEIGHT SMART VITAMIN [Concomitant]
     Indication: DRUG USE FOR UNKNOWN INDICATION
  13. FIBERCON [Concomitant]
     Indication: DRUG USE FOR UNKNOWN INDICATION
  14. MULTIBETIC VITAMIN [Concomitant]
     Indication: DRUG USE FOR UNKNOWN INDICATION
  15. VACCINATION FOR SHINGLES [Concomitant]
     Indication: DRUG USE FOR UNKNOWN INDICATION

REACTIONS (4)
  - ERYTHEMA [None]
  - FLUSHING [None]
  - HOT FLUSH [None]
  - RASH MACULAR [None]
